FAERS Safety Report 25551798 (Version 1)
Quarter: 2025Q3

REPORT INFORMATION
  Report Type: Report from Study
  Country: CA (occurrence: CA)
  Receive Date: 20250714
  Receipt Date: 20250714
  Transmission Date: 20251021
  Serious: Yes (Hospitalization, Other)
  Sender: HLS THERAPEUTICS
  Company Number: CA-HLS-202501736

PATIENT
  Age: 42 Year
  Sex: Male

DRUGS (10)
  1. CLOZARIL [Suspect]
     Active Substance: CLOZAPINE
     Indication: Product used for unknown indication
     Route: 048
     Dates: start: 20250430
  2. QUETIAPINE [Concomitant]
     Active Substance: QUETIAPINE
     Indication: Product used for unknown indication
     Route: 048
  3. LOXAPINE [Concomitant]
     Active Substance: LOXAPINE
     Indication: Product used for unknown indication
     Route: 030
  4. LOXAPINE [Concomitant]
     Active Substance: LOXAPINE
     Indication: Product used for unknown indication
     Route: 048
  5. LORAZEPAM [Concomitant]
     Active Substance: LORAZEPAM
     Indication: Product used for unknown indication
     Route: 030
  6. LORAZEPAM [Concomitant]
     Active Substance: LORAZEPAM
     Indication: Product used for unknown indication
     Route: 048
  7. LACTULOSE [Concomitant]
     Active Substance: LACTULOSE
     Indication: Constipation
     Route: 048
  8. BENZTROPINE [Concomitant]
     Active Substance: BENZTROPINE
     Indication: Product used for unknown indication
     Route: 030
  9. BENZTROPINE [Concomitant]
     Active Substance: BENZTROPINE
     Indication: Product used for unknown indication
     Route: 048
  10. INVEGA SUSTENNA [Concomitant]
     Active Substance: PALIPERIDONE PALMITATE
     Indication: Product used for unknown indication
     Route: 030

REACTIONS (17)
  - Altered state of consciousness [Unknown]
  - Constipation [Unknown]
  - Depression [Unknown]
  - Dry mouth [Unknown]
  - Hyponatraemia [Unknown]
  - Hyperhidrosis [Unknown]
  - Emotional poverty [Unknown]
  - Anosognosia [Unknown]
  - Mental disorder [Unknown]
  - Drooling [Unknown]
  - Weight increased [Unknown]
  - Restlessness [Unknown]
  - Rhabdomyolysis [Unknown]
  - Seizure [Unknown]
  - Photosensitivity reaction [Unknown]
  - Thinking abnormal [Unknown]
  - Fatigue [Unknown]

NARRATIVE: CASE EVENT DATE: 20240801
